FAERS Safety Report 6264049-9 (Version None)
Quarter: 2009Q3

REPORT INFORMATION
  Report Type: 
  Country: None (occurrence: None)
  Receive Date: 20090710
  Receipt Date: 20090706
  Transmission Date: 20100115
  Serious: Yes (Life-Threatening, Hospitalization)
  Sender: FDA-Public Use
  Company Number: PHHY2008JP19485

PATIENT
  Sex: Female
  Weight: 45 kg

DRUGS (11)
  1. EXJADE [Suspect]
     Indication: APLASTIC ANAEMIA
     Dosage: 750 MG/DAY
     Route: 048
     Dates: start: 20080710, end: 20080814
  2. EXJADE [Suspect]
     Indication: IRON OVERLOAD
     Dosage: 500 MG/DAY
     Route: 048
     Dates: start: 20080814, end: 20080828
  3. EXJADE [Suspect]
     Dosage: 125 MG / DAY
     Route: 048
     Dates: start: 20080911, end: 20081009
  4. SLOW-K [Concomitant]
     Dosage: UNK
     Route: 048
     Dates: start: 20081009
  5. PRIMOBOLAN [Concomitant]
     Dosage: UNK
     Route: 048
     Dates: start: 19960101
  6. LASIX [Concomitant]
     Dosage: UNK
     Route: 048
     Dates: start: 20081009
  7. ALDACTONE [Concomitant]
     Dosage: UNK
     Route: 048
     Dates: start: 20081009
  8. GLUCOBAY [Concomitant]
     Dosage: 300 MG, UNK
     Route: 048
     Dates: start: 20081009
  9. BIOFERMIN [Concomitant]
     Dosage: UNK
     Route: 048
     Dates: start: 20081009
  10. TEPRENONE [Concomitant]
     Indication: PROPHYLAXIS
     Dosage: UNK
     Dates: start: 19960101
  11. BLOOD TRANSFUSION, AUXILIARY PRODUCTS [Concomitant]
     Indication: APLASTIC ANAEMIA

REACTIONS (6)
  - ABDOMINAL PAIN [None]
  - INSOMNIA [None]
  - PAIN [None]
  - PRURITUS [None]
  - PYREXIA [None]
  - SEPTIC SHOCK [None]
